FAERS Safety Report 15002658 (Version 4)
Quarter: 2018Q3

REPORT INFORMATION
  Report Type: Report from Study
  Country: US (occurrence: US)
  Receive Date: 20180612
  Receipt Date: 20180918
  Transmission Date: 20181010
  Serious: Yes (Hospitalization, Other)
  Sender: FDA-Public Use
  Company Number: US-ACTELION-A-NJ2018-173499

PATIENT
  Age: 76 Year
  Sex: Male
  Weight: 127.89 kg

DRUGS (3)
  1. ELIQUIS [Concomitant]
     Active Substance: APIXABAN
  2. OXYGEN. [Concomitant]
     Active Substance: OXYGEN
  3. OPSUMIT [Suspect]
     Active Substance: MACITENTAN
     Indication: PULMONARY ARTERIAL HYPERTENSION
     Dosage: 10 MG, QD
     Route: 048

REACTIONS (8)
  - Localised infection [Unknown]
  - Atrial fibrillation [Unknown]
  - Fall [Unknown]
  - Haematoma [Unknown]
  - Pain [Unknown]
  - Furuncle [Unknown]
  - Implantable defibrillator insertion [Unknown]
  - Scapula fracture [Unknown]
